FAERS Safety Report 6483926-7 (Version None)
Quarter: 2009Q4

REPORT INFORMATION
  Report Type: 
  Country: None (occurrence: None)
  Receive Date: 20091209
  Receipt Date: 20091202
  Transmission Date: 20100525
  Serious: Yes (Hospitalization, Disabling)
  Sender: FDA-Public Use
  Company Number: CM-MERCK-0912USA00384

PATIENT
  Age: 27 Year
  Sex: Male
  Weight: 67 kg

DRUGS (1)
  1. STROMECTOL [Suspect]
     Indication: ONCHOCERCIASIS
     Route: 048
     Dates: start: 20091002, end: 20091002

REACTIONS (5)
  - ASTHENIA [None]
  - BACK PAIN [None]
  - DEPRESSED LEVEL OF CONSCIOUSNESS [None]
  - DISORIENTATION [None]
  - PYREXIA [None]
